FAERS Safety Report 13577645 (Version 2)
Quarter: 2017Q3

REPORT INFORMATION
  Report Type: Spontaneous
  Country: US (occurrence: US)
  Receive Date: 20170524
  Receipt Date: 20170823
  Transmission Date: 20171127
  Serious: Yes (Death, Hospitalization)
  Sender: FDA-Public Use
  Company Number: US-BAUSCH-BL-2017-016892

PATIENT
  Sex: Male

DRUGS (2)
  1. XIFAXAN [Suspect]
     Active Substance: RIFAXIMIN
     Indication: HEPATIC CIRRHOSIS
     Route: 065
  2. XIFAXAN [Suspect]
     Active Substance: RIFAXIMIN
     Indication: HEPATIC CANCER

REACTIONS (5)
  - Hepatic cancer stage IV [Fatal]
  - Rehabilitation therapy [Unknown]
  - Ammonia increased [Unknown]
  - Ascites [Unknown]
  - Fall [Unknown]

NARRATIVE: CASE EVENT DATE: 2017
